FAERS Safety Report 7811270-1 (Version None)
Quarter: 2011Q4

REPORT INFORMATION
  Report Type: 
  Country: None (occurrence: None)
  Receive Date: 20111013
  Receipt Date: 20111004
  Transmission Date: 20120403
  Serious: Yes (Hospitalization)
  Sender: FDA-Public Use
  Company Number: MX-SANOFI-AVENTIS-2011SA065193

PATIENT
  Age: 56 Year
  Sex: Female
  Weight: 59 kg

DRUGS (4)
  1. CARBAMAZEPINE [Concomitant]
     Route: 048
     Dates: start: 20100101
  2. DICLOFENAC [Concomitant]
     Route: 048
     Dates: start: 20110927
  3. ARAVA [Suspect]
     Indication: RHEUMATOID ARTHRITIS
     Route: 048
     Dates: start: 20100101
  4. ARAVA [Suspect]
     Route: 048
     Dates: start: 20060101, end: 20100101

REACTIONS (1)
  - OSTEOARTHRITIS [None]
